FAERS Safety Report 4655305-6 (Version None)
Quarter: 2005Q2

REPORT INFORMATION
  Report Type: 
  Country: None (occurrence: None)
  Receive Date: 20050505
  Receipt Date: 20031215
  Transmission Date: 20051028
  Serious: Yes (Life-Threatening)
  Sender: FDA-Public Use
  Company Number: 0002614 03-03

PATIENT
  Age: 80 Year
  Sex: Female

DRUGS (1)
  1. INTRALIPID 20% [Suspect]
     Indication: PARENTERAL NUTRITION
     Dosage: 250 MG/ -TOTAL/ INTRAVENOUS INF 20 MINUTES

REACTIONS (3)
  - ACUTE RESPIRATORY DISTRESS SYNDROME [None]
  - INCORRECT DRUG ADMINISTRATION RATE [None]
  - SEPTIC SHOCK [None]
